FAERS Safety Report 5623139-1 (Version None)
Quarter: 2008Q1

REPORT INFORMATION
  Report Type: 
  Country: None (occurrence: None)
  Receive Date: 20080212
  Receipt Date: 20080204
  Transmission Date: 20080703
  Serious: Yes (Death, Life-Threatening, Hospitalization)
  Sender: FDA-Public Use
  Company Number: B0507342A

PATIENT
  Age: 56 Year
  Sex: Male

DRUGS (10)
  1. ARIXTRA [Suspect]
     Indication: PHLEBITIS
     Dosage: 7.5MG PER DAY
     Route: 058
     Dates: start: 20071128, end: 20071209
  2. DIAMICRON [Concomitant]
  3. GLUCOR [Concomitant]
  4. GLUCOPHAGE [Concomitant]
  5. INDAPAMIDE [Concomitant]
  6. AMLOR [Concomitant]
  7. ATACAND [Concomitant]
  8. INNOHEP [Concomitant]
     Dates: start: 20071128
  9. AUGMENTIN '125' [Concomitant]
     Dosage: 1G THREE TIMES PER DAY
     Dates: start: 20071128
  10. ROCEPHIN [Concomitant]
     Indication: ERYSIPELAS
     Dates: start: 20071129

REACTIONS (6)
  - AGITATION [None]
  - COMA [None]
  - DELIRIUM [None]
  - HAEMORRHAGIC STROKE [None]
  - INTRACRANIAL HAEMATOMA [None]
  - SEPTIC SHOCK [None]
